FAERS Safety Report 25249358 (Version 1)
Quarter: 2025Q2

REPORT INFORMATION
  Report Type: Spontaneous
  Country: DK (occurrence: DK)
  Receive Date: 20250429
  Receipt Date: 20250429
  Transmission Date: 20250717
  Serious: Yes (Hospitalization, Other)
  Sender: AMGEN
  Company Number: DK-AMGEN-DNKSP2025079674

PATIENT
  Age: 7 Decade
  Sex: Female

DRUGS (6)
  1. TRASTUZUMAB [Suspect]
     Active Substance: TRASTUZUMAB
     Indication: HER2 positive breast cancer
     Route: 065
  2. TRASTUZUMAB [Suspect]
     Active Substance: TRASTUZUMAB
     Indication: Triple negative breast cancer
     Route: 065
  3. PACLITAXEL [Concomitant]
     Active Substance: PACLITAXEL
     Indication: HER2 positive breast cancer
  4. PACLITAXEL [Concomitant]
     Active Substance: PACLITAXEL
     Indication: Triple negative breast cancer
  5. PERTUZUMAB [Concomitant]
     Active Substance: PERTUZUMAB
     Indication: HER2 positive breast cancer
     Route: 065
  6. PERTUZUMAB [Concomitant]
     Active Substance: PERTUZUMAB
     Indication: Triple negative breast cancer

REACTIONS (6)
  - Acquired amegakaryocytic thrombocytopenia [Recovered/Resolved]
  - Neuropathy peripheral [Unknown]
  - Triple negative breast cancer [Unknown]
  - Haemoglobin decreased [Unknown]
  - Rash [Unknown]
  - Therapy partial responder [Unknown]
